FAERS Safety Report 4328744-0 (Version None)
Quarter: 2004Q1

REPORT INFORMATION
  Report Type: 
  Country: None (occurrence: None)
  Receive Date: 20040329
  Receipt Date: 20040108
  Transmission Date: 20041129
  Serious: Yes (Hospitalization)
  Sender: FDA-Public Use
  Company Number: 04P-163-0246981-00

PATIENT
  Age: 60 Year
  Sex: Male
  Weight: 79.3795 kg

DRUGS (7)
  1. HUMIRA [Suspect]
     Indication: RHEUMATOID ARTHRITIS
     Dosage: 40 MG, 1 IN 2 WK, SUBCUTANEOUS
     Route: 058
     Dates: start: 20031222, end: 20040105
  2. HYDROXYCHLOROQUINE SULFATE [Concomitant]
  3. AMLODIPINE BESYLATE [Concomitant]
  4. LEXAPRO [Concomitant]
  5. PREDNISONE [Concomitant]
  6. CELECOXIB [Concomitant]
  7. METHOTREXATE [Concomitant]

REACTIONS (2)
  - NASOPHARYNGITIS [None]
  - PNEUMONIA [None]
